FAERS Safety Report 10865703 (Version 1)
Quarter: 2015Q1

REPORT INFORMATION
  Report Type: Spontaneous
  Country: US (occurrence: US)
  Receive Date: 20150224
  Receipt Date: 20150224
  Transmission Date: 20150721
  Serious: No
  Sender: FDA-Public Use
  Company Number: US-GLAXOSMITHKLINE-US2015GSK011723

PATIENT
  Age: 65 Year
  Sex: Female

DRUGS (1)
  1. VENTOLIN HFA [Suspect]
     Active Substance: ALBUTEROL SULFATE
     Indication: BRONCHITIS
     Dosage: UNK, TID
     Route: 055
     Dates: start: 20150119

REACTIONS (3)
  - Underdose [Unknown]
  - Drug ineffective [Unknown]
  - Device use error [Unknown]

NARRATIVE: CASE EVENT DATE: 201501
